FAERS Safety Report 22523930 (Version 1)
Quarter: 2023Q2

REPORT INFORMATION
  Report Type: Other
  Country: GB (occurrence: GB)
  Receive Date: 20230606
  Receipt Date: 20230606
  Transmission Date: 20230722
  Serious: Yes (Other)
  Sender: FDA-Public Use
  Company Number: GB-PFIZER INC-PV202300090077

PATIENT

DRUGS (1)
  1. DEXAMETHASONE SODIUM PHOSPHATE [Suspect]
     Active Substance: DEXAMETHASONE SODIUM PHOSPHATE
     Indication: Product used for unknown indication
     Dosage: UNK, SIX ROUNDS
     Route: 065

REACTIONS (6)
  - Drug ineffective [Unknown]
  - Thrombosis [Unknown]
  - Mood swings [Unknown]
  - Quality of life decreased [Unknown]
  - Oesophageal disorder [Unknown]
  - Bone pain [Unknown]
